FAERS Safety Report 18013430 (Version 1)
Quarter: 2020Q3

REPORT INFORMATION
  Report Type: Spontaneous
  Country: CN (occurrence: CN)
  Receive Date: 20200713
  Receipt Date: 20200713
  Transmission Date: 20201103
  Serious: Yes (Hospitalization)
  Sender: FDA-Public Use
  Company Number: CN-ELI_LILLY_AND_COMPANY-CN202007002101

PATIENT
  Age: 76 Year
  Sex: Female

DRUGS (1)
  1. HUMULIN R [Suspect]
     Active Substance: INSULIN HUMAN
     Indication: BLOOD GLUCOSE INCREASED
     Dosage: 16 U, IN MORNING, IN EVENING
     Route: 058
     Dates: start: 20160308, end: 20200601

REACTIONS (10)
  - Blood pH decreased [Recovering/Resolving]
  - Blood creatine phosphokinase increased [Recovering/Resolving]
  - Acidosis [Recovered/Resolved]
  - Decreased appetite [Recovering/Resolving]
  - PCO2 decreased [Recovering/Resolving]
  - PO2 decreased [Recovering/Resolving]
  - Blood glucose increased [Recovering/Resolving]
  - Blood bicarbonate decreased [Recovering/Resolving]
  - Blood lactic acid decreased [Recovering/Resolving]
  - Diabetic ketoacidosis [Recovering/Resolving]

NARRATIVE: CASE EVENT DATE: 20200603
